FAERS Safety Report 8540476-1 (Version None)
Quarter: 2012Q3

REPORT INFORMATION
  Report Type: 
  Country: None (occurrence: None)
  Receive Date: 20120726
  Receipt Date: 20120719
  Transmission Date: 20120928
  Serious: No
  Sender: FDA-Public Use
  Company Number: US-B.I. PHARMACEUTICALS,INC./RIDGEFIELD-2012-BP-16143BP

PATIENT
  Sex: Female

DRUGS (1)
  1. ZANTAC [Suspect]
     Indication: OESOPHAGEAL SPASM
     Dosage: 25920000 MG
     Route: 048
     Dates: start: 20120101, end: 20120101

REACTIONS (2)
  - MALAISE [None]
  - INFLUENZA LIKE ILLNESS [None]
